FAERS Safety Report 13457620 (Version 2)
Quarter: 2017Q2

REPORT INFORMATION
  Report Type: Other
  Country: RU (occurrence: RU)
  Receive Date: 20170419
  Receipt Date: 20170428
  Transmission Date: 20170830
  Serious: Yes (Other)
  Sender: FDA-Public Use
  Company Number: RU-EMD SERONO-8153189

PATIENT
  Sex: Female

DRUGS (3)
  1. RECOMBINANT HUMAN FOLLICLE-STIMULATING HORMONE (R-HFSH) [Suspect]
     Active Substance: FOLLITROPIN
     Indication: OVULATION INDUCTION
  2. CHORIOGONADOTROPIN ALFA [Suspect]
     Active Substance: CHORIOGONADOTROPIN ALFA
     Indication: OVULATION INDUCTION
     Dosage: AT A DOSE OF 7,500 TO 10,000 IU
  3. PROGESTERONE. [Suspect]
     Active Substance: PROGESTERONE
     Indication: ASSISTED FERTILISATION
     Dosage: VIA INTRAVAGINAL ROUTE

REACTIONS (1)
  - Abortion spontaneous [Recovered/Resolved]
